FAERS Safety Report 5659475-2 (Version None)
Quarter: 2008Q1

REPORT INFORMATION
  Report Type: 
  Country: None (occurrence: None)
  Receive Date: 20080311
  Receipt Date: 20080304
  Transmission Date: 20080703
  Serious: Yes (Hospitalization)
  Sender: FDA-Public Use
  Company Number: PHBS2008IT03055

PATIENT
  Age: 26 Year
  Sex: Female

DRUGS (3)
  1. TORECAN [Suspect]
     Indication: VERTIGO
     Dosage: 19.5 MG/D
     Route: 048
     Dates: start: 20080220, end: 20080223
  2. TAVANIC [Concomitant]
     Dosage: 500 MG/D
     Route: 048
  3. TRIASPORIN [Concomitant]
     Dosage: 100 MG/D
     Route: 048

REACTIONS (5)
  - DYSKINESIA [None]
  - EXTRAPYRAMIDAL DISORDER [None]
  - JAW DISORDER [None]
  - SPEECH DISORDER [None]
  - TORTICOLLIS [None]
